FAERS Safety Report 25287702 (Version 5)
Quarter: 2025Q3

REPORT INFORMATION
  Report Type: Spontaneous
  Country: IN (occurrence: IN)
  Receive Date: 20250509
  Receipt Date: 20250706
  Transmission Date: 20251021
  Serious: Yes (Hospitalization, Disabling)
  Sender: JOHNSON AND JOHNSON
  Company Number: IN-MLMSERVICE-20250421-PI487058-00285-1

PATIENT
  Age: 49 Year
  Sex: Male
  Weight: 78 kg

DRUGS (7)
  1. TRAMADOL HYDROCHLORIDE [Interacting]
     Active Substance: TRAMADOL HYDROCHLORIDE
     Indication: Pain
     Dosage: 100 MILLIGRAM, 1/DAY
     Route: 048
  2. RISPERIDONE [Interacting]
     Active Substance: RISPERIDONE
     Indication: Schizophrenia
     Dosage: 4 MILLIGRAM, 1/DAY
     Route: 048
  3. RISPERIDONE [Interacting]
     Active Substance: RISPERIDONE
  4. RISPERIDONE [Interacting]
     Active Substance: RISPERIDONE
  5. RISPERIDONE [Interacting]
     Active Substance: RISPERIDONE
  6. RISPERIDONE [Interacting]
     Active Substance: RISPERIDONE
  7. RISPERIDONE [Interacting]
     Active Substance: RISPERIDONE

REACTIONS (2)
  - Drug interaction [Recovered/Resolved]
  - Dyskinesia [Recovered/Resolved]
